FAERS Safety Report 9897326 (Version 1)
Quarter: 2014Q1

REPORT INFORMATION
  Report Type: Spontaneous
  Country: FR (occurrence: FR)
  Receive Date: 20140214
  Receipt Date: 20140214
  Transmission Date: 20141002
  Serious: Yes (Hospitalization)
  Sender: FDA-Public Use
  Company Number: FR-JNJFOC-20140202385

PATIENT
  Age: 26 Year
  Sex: Female
  Weight: 58 kg

DRUGS (13)
  1. DUROGESIC [Suspect]
     Indication: COMPLEX REGIONAL PAIN SYNDROME
     Dosage: AT 8.4 MG/21 CM3, LONG TERM USE
     Route: 062
     Dates: end: 20130828
  2. NEURONTIN [Suspect]
     Indication: NEURALGIA
     Dosage: 1-1-1, LONG TERM USE
     Route: 048
  3. CYMBALTA [Suspect]
     Indication: DEPRESSION
     Dosage: 30 UNSPECIFIED UNITS ONCE A DAU IN MORNING
     Route: 048
  4. CYMBALTA [Suspect]
     Indication: DEPRESSION
     Dosage: LONG TERM USE
     Route: 048
  5. LAROXYL [Suspect]
     Indication: INSOMNIA
     Dosage: 40 MG/ML, LONG TERM USE
     Route: 048
  6. LAROXYL [Suspect]
     Indication: INSOMNIA
     Dosage: IN EVENING
     Route: 048
  7. IMOVANE [Suspect]
     Indication: INSOMNIA
     Dosage: ON RETIRING TO BED, LONG TERM USE
     Route: 048
  8. TRANSIPEG [Suspect]
     Indication: CONSTIPATION
     Dosage: ON DEMAND, LONG TERM USE
     Route: 048
  9. XANAX [Suspect]
     Indication: ANXIETY
     Dosage: 1/2-1/2-1, LONG TERM USE
     Route: 048
  10. KETAMINE [Suspect]
     Indication: COMPLEX REGIONAL PAIN SYNDROME
     Route: 065
  11. KETAMINE [Suspect]
     Indication: COMPLEX REGIONAL PAIN SYNDROME
     Route: 065
     Dates: start: 20130817, end: 20130817
  12. KETAMINE [Suspect]
     Indication: COMPLEX REGIONAL PAIN SYNDROME
     Route: 065
     Dates: start: 20130828, end: 20130828
  13. KETAMINE [Suspect]
     Indication: COMPLEX REGIONAL PAIN SYNDROME
     Route: 065

REACTIONS (4)
  - Psychomotor hyperactivity [Recovered/Resolved]
  - Off label use [Unknown]
  - Hyperhidrosis [Unknown]
  - Vomiting [Unknown]
